FAERS Safety Report 22519684 (Version 1)
Quarter: 2023Q2

REPORT INFORMATION
  Report Type: Spontaneous
  Country: US (occurrence: US)
  Receive Date: 20230605
  Receipt Date: 20230605
  Transmission Date: 20230722
  Serious: Yes (Other)
  Sender: FDA-Public Use
  Company Number: US-SANOFI-01636825

PATIENT
  Age: 67 Year
  Sex: Female

DRUGS (3)
  1. LANTUS [Suspect]
     Active Substance: INSULIN GLARGINE
     Indication: Type 2 diabetes mellitus
     Dosage: 32 U, QD
  2. TRULICITY [Concomitant]
     Active Substance: DULAGLUTIDE
  3. METFORMIN [Concomitant]
     Active Substance: METFORMIN HYDROCHLORIDE

REACTIONS (4)
  - Retinopathy [Unknown]
  - Blood glucose decreased [Unknown]
  - Wrong technique in product usage process [Unknown]
  - Visual impairment [Unknown]

NARRATIVE: CASE EVENT DATE: 20230101
